FAERS Safety Report 9104872 (Version 1)
Quarter: 2013Q1

REPORT INFORMATION
  Report Type: Report from Study
  Country: IT (occurrence: IT)
  Receive Date: 20130220
  Receipt Date: 20130220
  Transmission Date: 20140127
  Serious: Yes (Death, Hospitalization)
  Sender: FDA-Public Use
  Company Number: IT-ROCHE-1161800

PATIENT
  Age: 74 Year
  Sex: Male
  Weight: 47 kg

DRUGS (3)
  1. CISPLATIN [Suspect]
     Indication: SMALL CELL LUNG CANCER
     Dosage: DATE OF LAST DOSE PRIOR TO SAE: 31/OCT/2012
     Route: 042
     Dates: start: 20121029
  2. ETOPOSIDE [Suspect]
     Indication: SMALL CELL LUNG CANCER
     Dosage: DATE OF LAST DOSE PRIOR TO SAE: 31/OCT/2012
     Route: 042
     Dates: start: 20121029
  3. BEVACIZUMAB [Suspect]
     Indication: SMALL CELL LUNG CANCER
     Dosage: DATE OF LAST DOSE PRIOR TO SAE: 31/OCT/2012
     Route: 065
     Dates: start: 20121029

REACTIONS (2)
  - Diarrhoea [Fatal]
  - Respiratory failure [Fatal]
